FAERS Safety Report 5359066-7 (Version None)
Quarter: 2007Q2

REPORT INFORMATION
  Report Type: 
  Country: None (occurrence: None)
  Receive Date: 20070615
  Receipt Date: 20070604
  Transmission Date: 20071010
  Serious: Yes (Hospitalization, Other)
  Sender: FDA-Public Use
  Company Number: US-ELI_LILLY_AND_COMPANY-US200705006908

PATIENT
  Age: 62 Year
  Sex: Female

DRUGS (2)
  1. FORTEO [Suspect]
     Indication: OSTEOPOROSIS
     Dosage: UNK, UNK
     Dates: start: 20050101
  2. FORTEO [Suspect]
     Dosage: UNK, UNK
     Dates: start: 20070511

REACTIONS (23)
  - ACCIDENT AT WORK [None]
  - BACK INJURY [None]
  - BALANCE DISORDER [None]
  - BLOOD IRON DECREASED [None]
  - BONE PAIN [None]
  - DECREASED ACTIVITY [None]
  - DRUG INEFFECTIVE [None]
  - FALL [None]
  - GAIT DISTURBANCE [None]
  - HAEMORRHAGE [None]
  - INCISION SITE INFECTION [None]
  - INJECTION SITE BRUISING [None]
  - INJECTION SITE HAEMORRHAGE [None]
  - INJECTION SITE PAIN [None]
  - JOINT INJURY [None]
  - MUSCULAR WEAKNESS [None]
  - OEDEMA PERIPHERAL [None]
  - PAIN [None]
  - PAIN IN EXTREMITY [None]
  - PAIN THRESHOLD DECREASED [None]
  - POSTOPERATIVE WOUND INFECTION [None]
  - VERTEBRAL INJURY [None]
  - WRIST FRACTURE [None]
